FAERS Safety Report 4899237-7 (Version None)
Quarter: 2006Q1

REPORT INFORMATION
  Report Type: 
  Country: None (occurrence: None)
  Receive Date: 20060106
  Receipt Date: 20050310
  Transmission Date: 20060701
  Serious: Yes (Other)
  Sender: FDA-Public Use
  Company Number: HQWYE168817MAR05

PATIENT
  Age: 25 Year
  Sex: Female
  Weight: 90.8 kg

DRUGS (1)
  1. PRIMATENE MIST [Suspect]
     Indication: ASTHMA
     Dosage: 1 INHALATION AS NEEDED, INHALATION
     Route: 055
     Dates: start: 20040101, end: 20050310

REACTIONS (1)
  - ASTHENIA [None]
